FAERS Safety Report 25978121 (Version 1)
Quarter: 2025Q4

REPORT INFORMATION
  Report Type: Spontaneous
  Country: US (occurrence: US)
  Receive Date: 20251030
  Receipt Date: 20251030
  Transmission Date: 20260118
  Serious: Yes (Other)
  Sender: JIANGSU HENGRUI
  Company Number: US-JIANGSU HENGRUI PHARMACEUTICALS CO., LTD.-H2025001207369

PATIENT
  Age: 21 Year
  Weight: 52 kg

DRUGS (7)
  1. DEXMEDETOMIDINE HYDROCHLORIDE [Suspect]
     Active Substance: DEXMEDETOMIDINE HYDROCHLORIDE
     Indication: Light anaesthesia
     Dosage: 1 UG/KG
  2. DEXMEDETOMIDINE HYDROCHLORIDE [Suspect]
     Active Substance: DEXMEDETOMIDINE HYDROCHLORIDE
     Dosage: UNK UG/KG
  3. DEXMEDETOMIDINE HYDROCHLORIDE [Suspect]
     Active Substance: DEXMEDETOMIDINE HYDROCHLORIDE
     Dosage: UNK UG/KG
  4. GLYCOPYRROLATE [Suspect]
     Active Substance: GLYCOPYRROLATE
     Indication: Light anaesthesia
     Dosage: 0.2 MG, ST
  5. GLYCOPYRROLATE [Suspect]
     Active Substance: GLYCOPYRROLATE
     Dosage: 0.2 MG, ST
  6. FENTANYL [Suspect]
     Active Substance: FENTANYL
     Indication: Light anaesthesia
     Dosage: 25 UG
  7. HEPARIN [Suspect]
     Active Substance: HEPARIN SODIUM
     Indication: Light anaesthesia
     Dosage: 4000 U

REACTIONS (3)
  - Hypertensive crisis [Recovered/Resolved]
  - Acute pulmonary oedema [Recovered/Resolved]
  - Drug interaction [Recovered/Resolved]
